FAERS Safety Report 9519162 (Version 1)
Quarter: 2013Q3

REPORT INFORMATION
  Report Type: Spontaneous
  Country: US (occurrence: None)
  Receive Date: 20130911
  Receipt Date: 20130911
  Transmission Date: 20140515
  Serious: Yes (Other)
  Sender: FDA-Public Use
  Company Number: None

PATIENT
  Age: 51 Year
  Sex: Female
  Weight: 54.43 kg

DRUGS (2)
  1. TAPENTADOL [Suspect]
     Indication: PAIN
     Route: 048
  2. TAPENTADOL [Suspect]
     Indication: COMPLEX REGIONAL PAIN SYNDROME
     Route: 048

REACTIONS (12)
  - Urinary tract infection [None]
  - Nephrolithiasis [None]
  - Dyspnoea [None]
  - Urticaria [None]
  - Pruritus [None]
  - Dysphagia [None]
  - Gastrointestinal disorder [None]
  - Intestinal stenosis [None]
  - Insomnia [None]
  - Skin discolouration [None]
  - Eye disorder [None]
  - Cyst [None]
